FAERS Safety Report 18370783 (Version 2)
Quarter: 2020Q4

REPORT INFORMATION
  Report Type: Spontaneous
  Country: JP (occurrence: JP)
  Receive Date: 20201012
  Receipt Date: 20201102
  Transmission Date: 20210114
  Serious: Yes (Other)
  Sender: FDA-Public Use
  Company Number: JP-AMGEN-JPNSP2020164732

PATIENT
  Age: 85 Year
  Sex: Female

DRUGS (4)
  1. PRALIA [Suspect]
     Active Substance: DENOSUMAB
     Indication: OSTEOPOROSIS
     Dosage: 60 MILLIGRAM, Q6MO
     Route: 058
     Dates: start: 20131205, end: 20170907
  2. EVISTA [Concomitant]
     Active Substance: RALOXIFENE HYDROCHLORIDE
     Dosage: 60 MG, QD
     Route: 048
  3. RIMATIL [Concomitant]
     Active Substance: BUCILLAMINE
     Dosage: 100 MG, BID
     Route: 048
  4. OPALMON [Concomitant]
     Active Substance: LIMAPROST
     Dosage: 5 UG, TID
     Route: 048

REACTIONS (1)
  - Lumbar vertebral fracture [Recovered/Resolved]

NARRATIVE: CASE EVENT DATE: 20180607
